FAERS Safety Report 25073049 (Version 2)
Quarter: 2025Q1

REPORT INFORMATION
  Report Type: Spontaneous
  Country: US (occurrence: US)
  Receive Date: 20250313
  Receipt Date: 20250325
  Transmission Date: 20250408
  Serious: Yes (Hospitalization)
  Sender: TEVA
  Company Number: US-TEVA-VS-3306182

PATIENT
  Age: 75 Year
  Sex: Male

DRUGS (6)
  1. ACETAZOLAMIDE [Suspect]
     Active Substance: ACETAZOLAMIDE
     Indication: Orthostatic tremor
     Route: 065
  2. CLONAZEPAM [Suspect]
     Active Substance: CLONAZEPAM
     Indication: Orthostatic tremor
     Dosage: UP TO 0.5MG
     Route: 065
  3. GABAPENTIN [Suspect]
     Active Substance: GABAPENTIN
     Indication: Orthostatic tremor
     Route: 065
  4. VALPROIC ACID [Suspect]
     Active Substance: VALPROIC ACID
     Indication: Orthostatic tremor
     Route: 065
  5. PRIMIDONE [Suspect]
     Active Substance: PRIMIDONE
     Indication: Orthostatic tremor
     Route: 065
  6. TOPIRAMATE [Suspect]
     Active Substance: TOPIRAMATE
     Indication: Orthostatic tremor
     Dosage: UPTO 50MG
     Route: 065

REACTIONS (4)
  - Drug ineffective [Unknown]
  - Weight decreased [Unknown]
  - Decreased appetite [Unknown]
  - Sedation [Unknown]
